FAERS Safety Report 11911346 (Version 1)
Quarter: 2016Q1

REPORT INFORMATION
  Report Type: Report from Study
  Country: US (occurrence: US)
  Receive Date: 20160112
  Receipt Date: 20160112
  Transmission Date: 20160526
  Serious: No
  Sender: FDA-Public Use
  Company Number: US-009507513-2010SP002249

PATIENT
  Sex: Female

DRUGS (2)
  1. PEGINTRON [Suspect]
     Active Substance: PEGINTERFERON ALFA-2B
     Indication: HEPATITIS C
  2. MK-8908 [Suspect]
     Active Substance: INVESTIGATIONAL PRODUCT
     Indication: HEPATITIS C

REACTIONS (2)
  - Exposure via father [Unknown]
  - No adverse event [Unknown]
